FAERS Safety Report 18023030 (Version 2)
Quarter: 2021Q2

REPORT INFORMATION
  Report Type: Spontaneous
  Country: US (occurrence: US)
  Receive Date: 20200715
  Receipt Date: 20210412
  Transmission Date: 20210717
  Serious: No
  Sender: FDA-Public Use
  Company Number: US-ALLERGAN-2023328US

PATIENT
  Age: 72 Year
  Sex: Female

DRUGS (9)
  1. MAGNESIUM CITRATE. [Concomitant]
     Active Substance: MAGNESIUM CITRATE
  2. OMEPRAZOLE. [Concomitant]
     Active Substance: OMEPRAZOLE
     Indication: GASTROOESOPHAGEAL REFLUX DISEASE
  3. CLONAZEPAM. [Concomitant]
     Active Substance: CLONAZEPAM
  4. UBRELVY [Suspect]
     Active Substance: UBROGEPANT
     Indication: MIGRAINE
     Dosage: 100MG CAPSULE, CUT IN HALF
     Route: 048
     Dates: start: 20200528
  5. DILTIAZEM. [Concomitant]
     Active Substance: DILTIAZEM
     Indication: HYPERTENSION
  6. FAMOTIDINE. [Concomitant]
     Active Substance: FAMOTIDINE
  7. PROBIOTIC [Concomitant]
     Active Substance: PROBIOTICS NOS
  8. TYLENOL [Concomitant]
     Active Substance: ACETAMINOPHEN
  9. TUMS [Concomitant]
     Active Substance: CALCIUM CARBONATE

REACTIONS (6)
  - Wrong technique in product usage process [Unknown]
  - Abdominal pain [Unknown]
  - Abdominal pain upper [Recovered/Resolved]
  - Anxiety [Unknown]
  - Diarrhoea [Unknown]
  - Nausea [Recovered/Resolved]

NARRATIVE: CASE EVENT DATE: 20200529
